FAERS Safety Report 4478961-4 (Version None)
Quarter: 2004Q4

REPORT INFORMATION
  Report Type: 
  Country: None (occurrence: None)
  Receive Date: 20041015
  Receipt Date: 20041006
  Transmission Date: 20050328
  Serious: Yes (Hospitalization)
  Sender: FDA-Public Use
  Company Number: 8997

PATIENT
  Age: 63 Year
  Sex: Male

DRUGS (6)
  1. LEUCOVORIN [Suspect]
     Indication: GASTRIC CANCER
     Dosage: 945 MG WEEKLY, IV
     Route: 042
     Dates: start: 20040201
  2. FLUOROURACIL [Suspect]
     Indication: GASTRIC CANCER
     Dosage: 2300 MG WEEKLY, IV
     Route: 042
     Dates: start: 20040201
  3. IRINOTECAN [Suspect]
     Indication: GASTRIC CANCER
     Dosage: 151.2 MG , IV
     Route: 042
     Dates: start: 20040201
  4. METOPROLOL [Concomitant]
  5. ESOMEPRAZOLE [Concomitant]
  6. ENALAPRIL MALEATE [Concomitant]

REACTIONS (3)
  - DIARRHOEA [None]
  - DRUG INTERACTION [None]
  - VOMITING [None]
